FAERS Safety Report 5914058-1 (Version None)
Quarter: 2008Q4

REPORT INFORMATION
  Report Type: 
  Country: None (occurrence: None)
  Receive Date: 20081009
  Receipt Date: 20080925
  Transmission Date: 20090506
  Serious: Yes (Life-Threatening, Hospitalization)
  Sender: FDA-Public Use
  Company Number: FR-GENENTECH-269058

PATIENT
  Sex: Male

DRUGS (2)
  1. BEVACIZUMAB [Suspect]
     Indication: RENAL CANCER METASTATIC
     Dosage: 675 MG, UNK
     Route: 042
     Dates: start: 20080625
  2. INTERFERON ALFA 2A [Suspect]
     Indication: RENAL CANCER METASTATIC
     Dosage: 6 UNIT, 3/WEEK
     Route: 065
     Dates: start: 20080402

REACTIONS (1)
  - CHEST PAIN [None]
